FAERS Safety Report 15967782 (Version 1)
Quarter: 2019Q1

REPORT INFORMATION
  Report Type: Report from Study
  Country: US (occurrence: US)
  Receive Date: 20190215
  Receipt Date: 20190215
  Transmission Date: 20190418
  Serious: Yes (Other)
  Sender: FDA-Public Use
  Company Number: US-JNJFOC-20190210370

PATIENT
  Sex: Male

DRUGS (1)
  1. ITRACONAZOLE. [Suspect]
     Active Substance: ITRACONAZOLE
     Indication: PROSTATE CANCER RECURRENT
     Route: 048

REACTIONS (3)
  - Atrial flutter [Unknown]
  - Product use in unapproved indication [Unknown]
  - Off label use [Unknown]
